FAERS Safety Report 4544277-0 (Version None)
Quarter: 2005Q1

REPORT INFORMATION
  Report Type: 
  Country: None (occurrence: None)
  Receive Date: 20050104
  Receipt Date: 20041213
  Transmission Date: 20050727
  Serious: Yes (Other)
  Sender: FDA-Public Use
  Company Number: DE-ABBOTT-04P-062-0283862-00

PATIENT
  Sex: Female
  Weight: 53 kg

DRUGS (4)
  1. KLACID [Suspect]
     Indication: SUICIDE ATTEMPT
     Route: 048
     Dates: start: 20041213, end: 20041213
  2. ACETAMINOPHEN [Concomitant]
     Indication: SUICIDE ATTEMPT
     Route: 048
     Dates: start: 20041213, end: 20041213
  3. OPIPRAMOL HYDROCHLORIDE [Concomitant]
     Indication: SUICIDE ATTEMPT
     Route: 048
     Dates: start: 20041213, end: 20041213
  4. VOLTAREN [Concomitant]
     Indication: SUICIDE ATTEMPT
     Route: 048
     Dates: start: 20041213, end: 20041213

REACTIONS (1)
  - SUICIDE ATTEMPT [None]
